FAERS Safety Report 8471685-8 (Version None)
Quarter: 2012Q2

REPORT INFORMATION
  Report Type: 
  Country: None (occurrence: None)
  Receive Date: 20120627
  Receipt Date: 20120619
  Transmission Date: 20120825
  Serious: Yes (Other)
  Sender: FDA-Public Use
  Company Number: US-GLAXOSMITHKLINE-A0977883A

PATIENT
  Age: 62 Year
  Sex: Female
  Weight: 72.9 kg

DRUGS (4)
  1. TRASTUZUMAB [Concomitant]
  2. POTASSIUM ACETATE [Concomitant]
     Dosage: 60MEQ PER DAY
  3. TYKERB [Suspect]
     Indication: BREAST CANCER
     Dosage: 1000MG PER DAY
     Route: 048
  4. CELEXA [Suspect]
     Route: 065

REACTIONS (6)
  - BLOOD POTASSIUM DECREASED [None]
  - ELECTROLYTE IMBALANCE [None]
  - WEIGHT DECREASED [None]
  - DIARRHOEA [None]
  - ELECTROCARDIOGRAM QT PROLONGED [None]
  - DRUG INTERACTION [None]
